FAERS Safety Report 7834069-9 (Version None)
Quarter: 2011Q4

REPORT INFORMATION
  Report Type: 
  Country: None (occurrence: None)
  Receive Date: 20111024
  Receipt Date: 20111024
  Transmission Date: 20120403
  Serious: No
  Sender: FDA-Public Use
  Company Number: None

PATIENT
  Age: 47 Year
  Sex: Female
  Weight: 63.502 kg

DRUGS (1)
  1. COMBIPATCH [Suspect]
     Indication: MENOPAUSE
     Dosage: 0.05/0.14 MG
     Route: 062
     Dates: start: 20110326, end: 20111022

REACTIONS (6)
  - APPLICATION SITE IRRITATION [None]
  - APPLICATION SITE INFLAMMATION [None]
  - APPLICATION SITE PRURITUS [None]
  - IMPAIRED HEALING [None]
  - APPLICATION SITE PAIN [None]
  - PRODUCT ADHESION ISSUE [None]
